FAERS Safety Report 8186587-4 (Version None)
Quarter: 2012Q1

REPORT INFORMATION
  Report Type: 
  Country: None (occurrence: None)
  Receive Date: 20120302
  Receipt Date: 20120302
  Transmission Date: 20120608
  Serious: Yes (Life-Threatening)
  Sender: FDA-Public Use
  Company Number: None

PATIENT
  Age: 63 Year
  Sex: Male
  Weight: 87.4 kg

DRUGS (1)
  1. HYDROMORPHONE HCL [Suspect]
     Indication: PAIN
     Dosage: 4 MG UD IV
     Route: 042
     Dates: start: 20110929, end: 20110929

REACTIONS (3)
  - DRUG PRESCRIBING ERROR [None]
  - UNRESPONSIVE TO STIMULI [None]
  - CARDIO-RESPIRATORY ARREST [None]
